FAERS Safety Report 4356779-0 (Version None)
Quarter: 2004Q2

REPORT INFORMATION
  Report Type: 
  Country: None (occurrence: None)
  Receive Date: 20040507
  Receipt Date: 20040426
  Transmission Date: 20050107
  Serious: Yes (Other)
  Sender: FDA-Public Use
  Company Number: 2004028389

PATIENT
  Age: 42 Year
  Sex: Male
  Weight: 102.0593 kg

DRUGS (3)
  1. LIPITOR [Suspect]
     Indication: BLOOD CHOLESTEROL INCREASED
     Dosage: 80 MG (1 IN 1 D), ORAL
     Route: 048
     Dates: end: 20030101
  2. ROSUVASTATIN (ROSUVASTATIN) [Suspect]
     Indication: BLOOD CHOLESTEROL INCREASED
     Dosage: UNK, ORAL
     Route: 048
     Dates: start: 20030101
  3. ACETYLSALICYLIC ACID SRT [Concomitant]

REACTIONS (1)
  - PROSTATE CANCER [None]
